FAERS Safety Report 5363578-X (Version None)
Quarter: 2007Q2

REPORT INFORMATION
  Report Type: 
  Country: None (occurrence: None)
  Receive Date: 20070620
  Receipt Date: 20070613
  Transmission Date: 20071010
  Serious: Yes (Hospitalization)
  Sender: FDA-Public Use
  Company Number: A0654091A

PATIENT
  Age: 38 Year
  Sex: Female

DRUGS (4)
  1. TYKERB [Suspect]
     Indication: BREAST CANCER
     Dosage: 1250MG PER DAY
     Route: 048
     Dates: start: 20070529, end: 20070609
  2. XELODA [Concomitant]
  3. DECADRON [Concomitant]
  4. DILANTIN [Concomitant]

REACTIONS (16)
  - ABASIA [None]
  - CHEST DISCOMFORT [None]
  - CYSTITIS [None]
  - DEHYDRATION [None]
  - DIARRHOEA [None]
  - DYSPHAGIA [None]
  - ERYTHEMA [None]
  - FEELING ABNORMAL [None]
  - OEDEMA PERIPHERAL [None]
  - PAIN IN EXTREMITY [None]
  - PALMAR-PLANTAR ERYTHRODYSAESTHESIA SYNDROME [None]
  - PYREXIA [None]
  - RASH [None]
  - SLEEP DISORDER [None]
  - STOMATITIS [None]
  - WEIGHT DECREASED [None]
